FAERS Safety Report 7173047-2 (Version None)
Quarter: 2010Q4

REPORT INFORMATION
  Report Type: 
  Country: None (occurrence: None)
  Receive Date: 20101219
  Receipt Date: 20100218
  Transmission Date: 20110411
  Serious: No
  Sender: FDA-Public Use
  Company Number: US-AMGEN-KDL393762

PATIENT

DRUGS (9)
  1. ENBREL [Suspect]
     Indication: PRODUCT USED FOR UNKNOWN INDICATION
     Dosage: 50 MG, QWK
     Route: 058
  2. SERTRALINE HYDROCHLORIDE [Concomitant]
     Dosage: 25 MG, UNK
  3. SALBUTAMOL [Concomitant]
  4. ASCORBIC ACID [Concomitant]
     Dosage: 500 MG, UNK
  5. CANDESARTAN CILEXETIL [Concomitant]
     Dosage: 4 MG, UNK
  6. ESOMEPRAZOLE MAGNESIUM [Concomitant]
     Dosage: 20 MG, UNK
  7. CALCIUM [Concomitant]
     Dosage: 500 MG, UNK
  8. TIOTROPIUM BROMIDE [Concomitant]
     Dosage: UNK UNK, UNK
  9. MULTI-VITAMINS [Concomitant]
     Dosage: UNK UNK, UNK

REACTIONS (2)
  - BRONCHITIS [None]
  - RASH [None]
